FAERS Safety Report 7356514-8 (Version None)
Quarter: 2011Q1

REPORT INFORMATION
  Report Type: 
  Country: None (occurrence: None)
  Receive Date: 20110316
  Receipt Date: 20110302
  Transmission Date: 20110831
  Serious: Yes (Hospitalization, Other)
  Sender: FDA-Public Use
  Company Number: PHHY2010JP56569

PATIENT
  Sex: Female
  Weight: 49 kg

DRUGS (5)
  1. FLUOROURACIL [Suspect]
     Indication: BREAST CANCER
     Dosage: 800 MG, DAILY
     Dates: start: 20090313, end: 20090717
  2. ENDOXAN [Suspect]
     Indication: BREAST CANCER
     Dosage: 80 MG, DAILY
     Dates: start: 20090313, end: 20090717
  3. EPIRUBICIN HYDROCHLORIDE [Suspect]
     Indication: BREAST CANCER
     Dosage: 480 MG/M2, DAILY
     Route: 042
     Dates: start: 20090303, end: 20090717
  4. FEMARA [Suspect]
     Indication: BREAST CANCER
     Dosage: 2.5 MG, QD
     Route: 048
     Dates: start: 20090807
  5. ALFAROL [Concomitant]
     Indication: BONE DENSITY INCREASED
     Dosage: 0.5?G
     Route: 048
     Dates: start: 20090807

REACTIONS (19)
  - HAEMOPTYSIS [None]
  - NEUTROPHIL COUNT INCREASED [None]
  - BLOOD CHLORIDE DECREASED [None]
  - PROTEIN TOTAL DECREASED [None]
  - BLOOD LACTATE DEHYDROGENASE INCREASED [None]
  - CARDIAC FAILURE [None]
  - BLOOD UREA DECREASED [None]
  - BLOOD FIBRINOGEN INCREASED [None]
  - BLOOD GLUCOSE INCREASED [None]
  - WHITE BLOOD CELL COUNT INCREASED [None]
  - BLOOD SODIUM DECREASED [None]
  - LYMPHOCYTE COUNT DECREASED [None]
  - COUGH [None]
  - C-REACTIVE PROTEIN INCREASED [None]
  - ALBUMIN GLOBULIN RATIO DECREASED [None]
  - BLOOD BILIRUBIN INCREASED [None]
  - RED BLOOD CELL COUNT INCREASED [None]
  - BLOOD ALBUMIN DECREASED [None]
  - GAMMA-GLUTAMYLTRANSFERASE INCREASED [None]
